FAERS Safety Report 7564545-8 (Version None)
Quarter: 2011Q2

REPORT INFORMATION
  Report Type: 
  Country: None (occurrence: None)
  Receive Date: 20110622
  Receipt Date: 20100607
  Transmission Date: 20111010
  Serious: Yes (Other)
  Sender: FDA-Public Use
  Company Number: US-MYLANLABS-2010S1009019

PATIENT
  Age: 19 Year
  Sex: Female
  Weight: 78.93 kg

DRUGS (7)
  1. CLOZAPINE [Suspect]
     Indication: BIPOLAR DISORDER
     Route: 048
     Dates: start: 20090101, end: 20100517
  2. CLOZAPINE [Suspect]
     Indication: ATTENTION DEFICIT/HYPERACTIVITY DISORDER
     Route: 048
     Dates: start: 20090101, end: 20100517
  3. ZIPRASIDONE HYDROCHLORIDE [Concomitant]
     Dates: start: 20100127, end: 20100423
  4. BENZTROPINE MESYLATE [Concomitant]
     Dates: start: 20100409, end: 20100524
  5. IBUPROFEN [Concomitant]
     Dosage: Q8HR PRN
     Dates: start: 20100310, end: 20100523
  6. CLONIDINE [Concomitant]
     Dates: start: 20100330, end: 20100524
  7. CLOZAPINE [Suspect]
     Indication: BORDERLINE PERSONALITY DISORDER
     Route: 048
     Dates: start: 20090101, end: 20100517

REACTIONS (1)
  - GRANULOCYTOPENIA [None]
